FAERS Safety Report 4859732-3 (Version None)
Quarter: 2005Q4

REPORT INFORMATION
  Report Type: 
  Country: None (occurrence: None)
  Receive Date: 20051219
  Receipt Date: 20051205
  Transmission Date: 20060501
  Serious: Yes (Disabling, Other)
  Sender: FDA-Public Use
  Company Number: NSADSS2002046834

PATIENT
  Age: 42 Year
  Sex: Female
  Weight: 73.03 kg

DRUGS (2)
  1. REMICADE [Suspect]
     Indication: CHORIORETINOPATHY
     Route: 041
     Dates: start: 20020621
  2. REMICADE [Suspect]
     Indication: UVEITIS
     Route: 041
     Dates: start: 20020621

REACTIONS (3)
  - ANTINUCLEAR ANTIBODY POSITIVE [None]
  - LUPUS-LIKE SYNDROME [None]
  - POLYARTHRITIS [None]
